FAERS Safety Report 19170473 (Version 1)
Quarter: 2021Q2

REPORT INFORMATION
  Report Type: Spontaneous
  Country: US (occurrence: US)
  Receive Date: 20210422
  Receipt Date: 20210422
  Transmission Date: 20210717
  Serious: No
  Sender: FDA-Public Use
  Company Number: US-BAUSCH-BL-2021-010315

PATIENT
  Age: 77 Year
  Sex: Female
  Weight: 59.02 kg

DRUGS (1)
  1. LOTEMAX SM [Suspect]
     Active Substance: LOTEPREDNOL ETABONATE
     Indication: EYE INFLAMMATION
     Dosage: ONE DROP IN EACH EYE
     Route: 047
     Dates: start: 20210317

REACTIONS (4)
  - Eyelash discolouration [Not Recovered/Not Resolved]
  - Wrong technique in product usage process [Unknown]
  - Eye discharge [Not Recovered/Not Resolved]
  - Vision blurred [Not Recovered/Not Resolved]

NARRATIVE: CASE EVENT DATE: 202103
